FAERS Safety Report 9804413 (Version 2)
Quarter: 2014Q1

REPORT INFORMATION
  Report Type: Spontaneous
  Country: FR (occurrence: FR)
  Receive Date: 20140108
  Receipt Date: 20140127
  Transmission Date: 20141002
  Serious: Yes (Other)
  Sender: FDA-Public Use
  Company Number: FR-TEVA-453992ISR

PATIENT
  Sex: Female

DRUGS (3)
  1. COPAXONE [Suspect]
     Indication: MULTIPLE SCLEROSIS
     Dosage: WITH THE AUTOJECT AT 8/10 MM
     Route: 058
     Dates: start: 20130621
  2. RIVOTRIL [Concomitant]
     Indication: LIMB DISCOMFORT
     Dosage: 10 GTT DAILY; IN THE EVENING
  3. CYMBALTA [Concomitant]
     Indication: LIMB DISCOMFORT
     Dosage: 90 MILLIGRAM DAILY; 30 MG IN THE MORNING AND 60MG IN THE EVENING

REACTIONS (3)
  - Multiple sclerosis relapse [Not Recovered/Not Resolved]
  - Sensory disturbance [Unknown]
  - Burning sensation [Not Recovered/Not Resolved]
